FAERS Safety Report 23086343 (Version 1)
Quarter: 2023Q4

REPORT INFORMATION
  Report Type: Spontaneous
  Country: CN (occurrence: CN)
  Receive Date: 20231019
  Receipt Date: 20231019
  Transmission Date: 20240110
  Serious: Yes (Other)
  Sender: FDA-Public Use
  Company Number: CN-SERVIER-S23011712

PATIENT

DRUGS (2)
  1. IVABRADINE HYDROCHLORIDE [Suspect]
     Active Substance: IVABRADINE HYDROCHLORIDE
     Indication: Acute myocardial infarction
     Dosage: 5 MG, BID
     Route: 048
  2. SODIUM TANSHINONE IIA SULFONATE [Suspect]
     Active Substance: SODIUM TANSHINONE IIA SULFONATE
     Indication: Acute myocardial infarction
     Dosage: 40 MG, QD
     Route: 040

REACTIONS (3)
  - Arrhythmia [Unknown]
  - Cardiac failure acute [Unknown]
  - Infarction [Unknown]
